FAERS Safety Report 5846496-X (Version None)
Quarter: 2008Q3

REPORT INFORMATION
  Report Type: 
  Country: None (occurrence: None)
  Receive Date: 20080815
  Receipt Date: 20080806
  Transmission Date: 20090109
  Serious: Yes (Disabling)
  Sender: FDA-Public Use
  Company Number: IE-ASTRAZENECA-2008GB00236

PATIENT
  Sex: Female
  Weight: 65.3 kg

DRUGS (3)
  1. CRESTOR [Suspect]
     Indication: BLOOD CHOLESTEROL INCREASED
     Dosage: 20 MG
     Route: 048
     Dates: start: 20060121
  2. NORINYL 1+35 28-DAY [Concomitant]
  3. FEXOFENADINE HCL [Concomitant]

REACTIONS (7)
  - DRY EYE [None]
  - EYE IRRITATION [None]
  - FOREIGN BODY SENSATION IN EYES [None]
  - OCULAR HYPERAEMIA [None]
  - OCULAR ICTERUS [None]
  - SPINAL COMPRESSION FRACTURE [None]
  - VISION BLURRED [None]
